FAERS Safety Report 11362209 (Version 1)
Quarter: 2015Q3

REPORT INFORMATION
  Report Type: Spontaneous
  Country: DE (occurrence: DE)
  Receive Date: 20150810
  Receipt Date: 20150810
  Transmission Date: 20151125
  Serious: Yes (Hospitalization)
  Sender: FDA-Public Use
  Company Number: DE-TEVA-584167GER

PATIENT
  Age: 78 Year
  Sex: Female

DRUGS (7)
  1. ZYPREXA [Interacting]
     Active Substance: OLANZAPINE
     Route: 048
     Dates: start: 20111013, end: 20111027
  2. SIMVAGAMMA [Concomitant]
     Route: 048
  3. CITALOPRAM [Interacting]
     Active Substance: CITALOPRAM HYDROBROMIDE
     Route: 048
     Dates: start: 20110930
  4. ZOPICLONE [Concomitant]
     Active Substance: ZOPICLONE
     Route: 048
  5. SEROQUEL [Concomitant]
     Active Substance: QUETIAPINE FUMARATE
     Route: 048
     Dates: end: 20111012
  6. REMERGIL [Interacting]
     Active Substance: MIRTAZAPINE
     Route: 048
     Dates: start: 20110731, end: 20111110
  7. CITALOPRAM [Suspect]
     Active Substance: CITALOPRAM HYDROBROMIDE
     Route: 048

REACTIONS (2)
  - Drug interaction [Unknown]
  - Urinary hesitation [Recovered/Resolved]

NARRATIVE: CASE EVENT DATE: 20111027
